FAERS Safety Report 8096336-6 (Version None)
Quarter: 2012Q1

REPORT INFORMATION
  Report Type: 
  Country: None (occurrence: None)
  Receive Date: 20120129
  Receipt Date: 20111208
  Transmission Date: 20120608
  Serious: No
  Sender: FDA-Public Use
  Company Number: US-ABBOTT-11P-163-0882208-00

PATIENT
  Age: 41 Year
  Sex: Female

DRUGS (7)
  1. FLEXERIL [Concomitant]
     Indication: INSOMNIA
     Route: 048
  2. CEFUROXIME [Concomitant]
     Indication: INFECTION
  3. ATENOLOL [Concomitant]
     Indication: HYPERTENSION
     Route: 048
  4. CEFUROXIME [Concomitant]
     Indication: BARTHOLIN'S CYST
  5. HUMIRA [Suspect]
     Indication: CROHN'S DISEASE
     Dosage: 160MG, 80MG DAY 15, 40 MG DAY 29, EOW
     Dates: start: 20111129
  6. ASACOL [Concomitant]
     Indication: CROHN'S DISEASE
     Route: 048
  7. LEVOTHYROXINE SODIUM [Concomitant]
     Indication: HYPOTHYROIDISM
     Route: 048

REACTIONS (1)
  - INJECTION SITE PAIN [None]
